FAERS Safety Report 9338071 (Version 1)
Quarter: 2013Q2

REPORT INFORMATION
  Report Type: Spontaneous
  Country: US (occurrence: US)
  Receive Date: 20130610
  Receipt Date: 20130610
  Transmission Date: 20140414
  Serious: No
  Sender: FDA-Public Use
  Company Number: US-B.I. PHARMACEUTICALS,INC./RIDGEFIELD-2013-BI-15804BP

PATIENT
  Age: 58 Year
  Sex: Male
  Weight: 32 kg

DRUGS (1)
  1. JENTADUETO [Suspect]
     Indication: TYPE 2 DIABETES MELLITUS
     Dosage: STRENGTH: 2.5 MG / 1000 MG; DAILY DOSE: 5 MG / 2000 MG
     Route: 048
     Dates: start: 201205

REACTIONS (3)
  - Myalgia [Not Recovered/Not Resolved]
  - Feeling cold [Recovered/Resolved]
  - Feeling cold [Recovered/Resolved]
